FAERS Safety Report 9265002 (Version 5)
Quarter: 2014Q1

REPORT INFORMATION
  Report Type: Spontaneous
  Country: US (occurrence: US)
  Receive Date: 20130501
  Receipt Date: 20140130
  Transmission Date: 20141002
  Serious: Yes (Hospitalization, Other)
  Sender: FDA-Public Use
  Company Number: US-009507513-1304USA016963

PATIENT
  Sex: Female
  Weight: 67.12 kg

DRUGS (6)
  1. FOSAMAX [Suspect]
     Indication: OSTEOPENIA
     Dosage: 70 MG, QW
     Route: 048
     Dates: start: 20010517, end: 200802
  2. FOSAMAX [Interacting]
     Dosage: 70 MG, QW
     Route: 048
     Dates: start: 200904, end: 201002
  3. FOSAMAX [Interacting]
     Dosage: UNK
     Route: 048
     Dates: start: 200402, end: 201103
  4. ALENDRONATE SODIUM [Interacting]
     Indication: OSTEOPENIA
     Dosage: 70 MG, QW
     Route: 048
     Dates: start: 200803, end: 200903
  5. VITAMINS (UNSPECIFIED) [Concomitant]
     Dosage: 1 QD
     Dates: start: 1998
  6. CALCIUM (UNSPECIFIED) (+) VITAMIN D (UNSPECIFIED) [Concomitant]
     Dosage: 600 MG, BID
     Dates: start: 1998

REACTIONS (11)
  - Femur fracture [Unknown]
  - Intramedullary rod insertion [Unknown]
  - Post procedural haemorrhage [Unknown]
  - Leukocytosis [Unknown]
  - Osteoporosis [Unknown]
  - Arthritis [Unknown]
  - Cataract operation [Unknown]
  - Cataract operation [Unknown]
  - Wound [Unknown]
  - Pain in extremity [Unknown]
  - Back pain [Unknown]
